FAERS Safety Report 21833399 (Version 1)
Quarter: 2023Q1

REPORT INFORMATION
  Report Type: Spontaneous
  Country: US (occurrence: US)
  Receive Date: 20230107
  Receipt Date: 20230107
  Transmission Date: 20230417
  Serious: Yes (Other)
  Sender: FDA-Public Use
  Company Number: US-drreddys-SPO/USA/22/0159298

PATIENT
  Age: 6 Decade
  Sex: Female

DRUGS (2)
  1. MELOXICAM [Suspect]
     Active Substance: MELOXICAM
     Indication: Rheumatoid arthritis
  2. PREDNISONE [Suspect]
     Active Substance: PREDNISONE
     Indication: Rheumatoid arthritis

REACTIONS (2)
  - Pulmonary oedema [Recovered/Resolved]
  - Fluid retention [Recovered/Resolved]
